FAERS Safety Report 4283709-2 (Version None)
Quarter: 2004Q1

REPORT INFORMATION
  Report Type: 
  Country: None (occurrence: None)
  Receive Date: 20040129
  Receipt Date: 20040129
  Transmission Date: 20041129
  Serious: Yes (Hospitalization, Disabling)
  Sender: FDA-Public Use
  Company Number: None

PATIENT
  Age: 68 Year
  Sex: Male
  Weight: 96.1626 kg

DRUGS (10)
  1. LEVOFLOXACIN [Suspect]
     Indication: UPPER RESPIRATORY TRACT INFECTION
     Dosage: 250 MG PO QD
     Route: 048
     Dates: start: 20030326, end: 20030402
  2. LEVOFLOXACIN [Suspect]
     Indication: URINARY TRACT INFECTION
     Dosage: 250 MG PO QD
     Route: 048
     Dates: start: 20030326, end: 20030402
  3. PHENYTOIN [Suspect]
     Indication: CONVULSION
     Dosage: 100 MG PO TID
     Route: 048
  4. HYDRALAZINE HCL [Concomitant]
  5. CARTIA XT [Concomitant]
  6. ATENOLOL [Concomitant]
  7. DIOVAN [Concomitant]
  8. CATAPRESS [Concomitant]
  9. BUSPAR [Concomitant]
  10. LANTUS [Concomitant]

REACTIONS (6)
  - CONVULSION [None]
  - GRAND MAL CONVULSION [None]
  - HYPERTENSION [None]
  - HYPOXIC ENCEPHALOPATHY [None]
  - UPPER RESPIRATORY TRACT INFECTION [None]
  - URINARY TRACT INFECTION [None]
